FAERS Safety Report 9746639 (Version 1)
Quarter: 2013Q4

REPORT INFORMATION
  Report Type: Spontaneous
  Country: US (occurrence: US)
  Receive Date: 20131211
  Receipt Date: 20131211
  Transmission Date: 20140711
  Serious: No
  Sender: FDA-Public Use
  Company Number: US-PFIZER INC-2013351485

PATIENT
  Age: 70 Year
  Sex: Female

DRUGS (1)
  1. LIPITOR [Suspect]
     Dosage: 10 MG OR 20MG, UNK
     Dates: start: 2013, end: 2013

REACTIONS (5)
  - Dizziness [Unknown]
  - Palpitations [Unknown]
  - Pain in extremity [Unknown]
  - Abdominal distension [Unknown]
  - Weight increased [Unknown]
